FAERS Safety Report 6533754-9 (Version None)
Quarter: 2010Q1

REPORT INFORMATION
  Report Type: 
  Country: None (occurrence: None)
  Receive Date: 20100111
  Receipt Date: 20090324
  Transmission Date: 20100710
  Serious: No
  Sender: FDA-Public Use
  Company Number: US-ABBOTT-09P-163-0564297-00

PATIENT
  Age: 28 Year
  Sex: Male
  Weight: 52.21 kg

DRUGS (3)
  1. HYDROCODONE [Suspect]
     Indication: DRUG USE FOR UNKNOWN INDICATION
  2. TRAMADOL HCL [Suspect]
     Indication: ARTHRALGIA
     Route: 048
     Dates: start: 20070901
  3. PENTAZOCINE [Suspect]
     Indication: DRUG USE FOR UNKNOWN INDICATION
     Route: 048

REACTIONS (1)
  - DRUG SCREEN POSITIVE [None]
